FAERS Safety Report 5019905-6 (Version None)
Quarter: 2006Q2

REPORT INFORMATION
  Report Type: 
  Country: None (occurrence: None)
  Receive Date: 20060605
  Receipt Date: 20060605
  Transmission Date: 20061013
  Serious: Yes (Life-Threatening)
  Sender: FDA-Public Use
  Company Number: None

PATIENT
  Age: 67 Year
  Sex: Female
  Weight: 55.7924 kg

DRUGS (4)
  1. GEMCITABINE [Suspect]
     Indication: PANCREATIC CARCINOMA
     Dosage: 1500 MG/ M2 DAY 3 + 10 IV
     Route: 042
     Dates: start: 20060301
  2. GLEEVEC [Suspect]
     Dosage: 400 MG DAILY 1-5,8-12 PO
     Route: 048
     Dates: start: 20060227
  3. GLUCOTROL [Concomitant]
  4. METOPROLOL [Concomitant]

REACTIONS (1)
  - NEUTROPENIA [None]
